FAERS Safety Report 4714974-2 (Version None)
Quarter: 2005Q3

REPORT INFORMATION
  Report Type: 
  Country: None (occurrence: None)
  Receive Date: 20050715
  Receipt Date: 20050708
  Transmission Date: 20060218
  Serious: Yes (Hospitalization)
  Sender: FDA-Public Use
  Company Number: 200511993JP

PATIENT
  Age: 66 Year
  Sex: Female
  Weight: 63 kg

DRUGS (14)
  1. ARAVA [Suspect]
     Indication: RHEUMATOID ARTHRITIS
     Route: 048
     Dates: start: 20031004, end: 20031113
  2. NEUER [Concomitant]
     Indication: GASTRITIS
     Route: 048
  3. NEUER [Concomitant]
     Indication: PROPHYLAXIS
     Route: 048
  4. ACTONEL [Concomitant]
     Indication: OSTEOPOROSIS
     Route: 048
  5. CLINORIL [Concomitant]
     Indication: RHEUMATOID ARTHRITIS
     Route: 048
  6. GLAKAY [Concomitant]
     Indication: OSTEOPOROSIS
     Route: 048
  7. HYPEN [Concomitant]
     Indication: RHEUMATOID ARTHRITIS
     Route: 048
  8. GASTER [Concomitant]
     Indication: GASTRITIS
     Route: 048
  9. GASTER [Concomitant]
     Indication: PROPHYLAXIS
     Route: 048
  10. THIOLA [Concomitant]
     Indication: RHEUMATOID ARTHRITIS
     Dates: end: 20031002
  11. ROCALTROL [Concomitant]
     Indication: OSTEOPOROSIS
     Route: 048
  12. METALCAPTASE [Concomitant]
     Indication: RHEUMATOID ARTHRITIS
     Route: 048
     Dates: end: 20031002
  13. PREDONINE [Concomitant]
     Indication: RHEUMATOID ARTHRITIS
     Route: 048
  14. KETOPROFEN [Concomitant]
     Indication: RHEUMATOID ARTHRITIS
     Route: 062

REACTIONS (1)
  - CHOLECYSTITIS [None]
